FAERS Safety Report 16866314 (Version 1)
Quarter: 2019Q3

REPORT INFORMATION
  Report Type: Spontaneous
  Country: GB (occurrence: GB)
  Receive Date: 20190930
  Receipt Date: 20190930
  Transmission Date: 20191005
  Serious: Yes (Death)
  Sender: FDA-Public Use
  Company Number: GB-ACCORD-156078

PATIENT
  Age: 59 Year
  Sex: Male
  Weight: 87 kg

DRUGS (15)
  1. DERMOL [Concomitant]
     Active Substance: BENZALKONIUM CHLORIDE\CHLORHEXIDINE HYDROCHLORIDE\ISOPROPYL MYRISTATE\PARAFFIN
  2. COTRIMOXAZOLE [Concomitant]
     Active Substance: SULFAMETHOXAZOLE\TRIMETHOPRIM
  3. ALENDRONATE SODIUM/ALENDRONIC ACID [Concomitant]
  4. RITUXIMAB. [Concomitant]
     Active Substance: RITUXIMAB
  5. PREDNISOLONE. [Concomitant]
     Active Substance: PREDNISOLONE
  6. MEROPENEM. [Concomitant]
     Active Substance: MEROPENEM
  7. BECLOMETASONE [Concomitant]
     Active Substance: BECLOMETHASONE DIPROPIONATE
  8. METHYLPREDNISOLONE. [Concomitant]
     Active Substance: METHYLPREDNISOLONE
  9. RANITIDINE. [Concomitant]
     Active Substance: RANITIDINE
  10. CASPOFUNGIN [Concomitant]
     Active Substance: CASPOFUNGIN
  11. FOLIC ACID. [Concomitant]
     Active Substance: FOLIC ACID
  12. DERMOVATE [Concomitant]
     Active Substance: CLOBETASOL
  13. PULMOZYME [Concomitant]
     Active Substance: DORNASE ALFA
  14. METHOTREXATE. [Suspect]
     Active Substance: METHOTREXATE
     Indication: PEMPHIGUS
     Route: 048
     Dates: start: 20190520, end: 20190902
  15. HYDROXYCHLOROQUINE [Concomitant]
     Active Substance: HYDROXYCHLOROQUINE

REACTIONS (2)
  - Pulmonary fibrosis [Fatal]
  - Respiratory failure [Fatal]

NARRATIVE: CASE EVENT DATE: 20190902
